FAERS Safety Report 8841774 (Version 2)
Quarter: 2013Q1

REPORT INFORMATION
  Report Type: Spontaneous
  Country: US (occurrence: US)
  Receive Date: 20121016
  Receipt Date: 20130123
  Transmission Date: 20140127
  Serious: No
  Sender: FDA-Public Use
  Company Number: US-009507513-1209USA008791

PATIENT
  Age: 55 Year
  Sex: Female

DRUGS (1)
  1. NASONEX [Suspect]
     Indication: SEASONAL ALLERGY
     Dosage: 2 SPRAYS IN EACH NOSTRIL, ONCE DAILY
     Route: 045
     Dates: start: 20120912, end: 20120912

REACTIONS (2)
  - Dizziness [Recovering/Resolving]
  - Epistaxis [Recovering/Resolving]
